FAERS Safety Report 16119731 (Version 2)
Quarter: 2020Q1

REPORT INFORMATION
  Report Type: Report from Study
  Country: US (occurrence: US)
  Receive Date: 20190326
  Receipt Date: 20200306
  Transmission Date: 20200409
  Serious: Yes (Hospitalization, Other)
  Sender: FDA-Public Use
  Company Number: US-EXELIXIS-XL18418016763

PATIENT
  Age: 75 Year
  Sex: Male
  Weight: 78.3 kg

DRUGS (21)
  1. MICONAZOLE. [Concomitant]
     Active Substance: MICONAZOLE
  2. XL184 [Suspect]
     Active Substance: CABOZANTINIB
     Indication: HORMONE-REFRACTORY PROSTATE CANCER
     Dosage: 40 MG, QD
     Route: 048
     Dates: start: 20180618, end: 20181010
  3. ATEZOLIZUMAB. [Suspect]
     Active Substance: ATEZOLIZUMAB
     Indication: HORMONE-REFRACTORY PROSTATE CANCER
     Dosage: 1200 MG, Q3WEEKS
     Route: 042
     Dates: start: 20180618
  4. MUPIROCIN. [Concomitant]
     Active Substance: MUPIROCIN
  5. ALLEGRA [Concomitant]
     Active Substance: FEXOFENADINE HYDROCHLORIDE
  6. LISINOPRIL. [Concomitant]
     Active Substance: LISINOPRIL
  7. VITAMIN D [Concomitant]
     Active Substance: VITAMIN D NOS
  8. LOPID [Concomitant]
     Active Substance: GEMFIBROZIL
  9. KENALOG [Concomitant]
     Active Substance: TRIAMCINOLONE ACETONIDE
  10. CALCIPOTRIENE. [Concomitant]
     Active Substance: CALCIPOTRIENE
  11. FIBER [Concomitant]
     Active Substance: PSYLLIUM HUSK
  12. FLONASE [Concomitant]
     Active Substance: FLUTICASONE PROPIONATE
  13. PROTONIX [Concomitant]
     Active Substance: PANTOPRAZOLE SODIUM
  14. XL184 [Suspect]
     Active Substance: CABOZANTINIB
     Dosage: 40 MG, QD
     Route: 048
     Dates: start: 20181210
  15. CALCIUM [Concomitant]
     Active Substance: CALCIUM
  16. MOTRIN [Concomitant]
     Active Substance: IBUPROFEN
  17. XYZAL [Concomitant]
     Active Substance: LEVOCETIRIZINE DIHYDROCHLORIDE
  18. BIOTIN [Concomitant]
     Active Substance: BIOTIN
  19. CLOBETASOL [Concomitant]
     Active Substance: CLOBETASOL
  20. ATARAX [Concomitant]
     Active Substance: HYDROXYZINE HYDROCHLORIDE
  21. PROTOPIC [Concomitant]
     Active Substance: TACROLIMUS

REACTIONS (2)
  - Cellulitis [Recovered/Resolved]
  - Adrenal insufficiency [Recovered/Resolved]

NARRATIVE: CASE EVENT DATE: 20181021
